FAERS Safety Report 9435458 (Version 1)
Quarter: 2013Q3

REPORT INFORMATION
  Report Type: Spontaneous
  Country: US (occurrence: US)
  Receive Date: 20130801
  Receipt Date: 20130801
  Transmission Date: 20140515
  Serious: No
  Sender: FDA-Public Use
  Company Number: US-009507513-1307USA015021

PATIENT
  Sex: Male

DRUGS (1)
  1. NASONEX [Suspect]
     Dosage: 1 SPRAY IN EACH NOSTRIL TWICE A DAY
     Route: 045
     Dates: start: 20111109

REACTIONS (1)
  - Drug ineffective [Unknown]
